FAERS Safety Report 5161167-3 (Version None)
Quarter: 2006Q4

REPORT INFORMATION
  Report Type: 
  Country: None (occurrence: None)
  Receive Date: 20061121
  Receipt Date: 20061108
  Transmission Date: 20070319
  Serious: Yes (Disabling)
  Sender: FDA-Public Use
  Company Number: REM_00296_2006

PATIENT
  Sex: Male

DRUGS (6)
  1. REMODULIN [Suspect]
     Indication: PULMONARY HYPERTENSION
     Dosage: 18.25 NG/KG/MIN
     Route: 058
     Dates: start: 20060801
  2. ACENOCOUMAROL [Concomitant]
  3. TORSEMIDE [Concomitant]
  4. OMEPRAZOLE [Concomitant]
  5. NITROGLYCERIN [Concomitant]
  6. TIOTROPIUM [Concomitant]

REACTIONS (2)
  - DYSPHAGIA [None]
  - SUDDEN DEATH [None]
